FAERS Safety Report 6927799-4 (Version None)
Quarter: 2010Q3

REPORT INFORMATION
  Report Type: 
  Country: None (occurrence: None)
  Receive Date: 20100817
  Receipt Date: 20100805
  Transmission Date: 20110219
  Serious: Yes (Other)
  Sender: FDA-Public Use
  Company Number: CA-PFIZER INC-2010098661

PATIENT
  Age: 56 Year
  Sex: Male

DRUGS (10)
  1. SUTENT [Suspect]
     Dosage: UNK
  2. TIAZAC [Concomitant]
     Dosage: UNK
  3. HYCODAN [Concomitant]
     Dosage: UNK
  4. LIPITOR [Concomitant]
     Dosage: UNK
  5. FRAGMIN [Concomitant]
     Dosage: UNK
  6. DOCUSATE SODIUM [Concomitant]
     Dosage: UNK
  7. MOTILIUM ^JANSSEN^ [Concomitant]
     Dosage: UNK
  8. PANTOPRAZOLE [Concomitant]
     Dosage: UNK
  9. PROCHLORPERAZINE [Concomitant]
     Dosage: UNK
  10. VENTOLIN [Concomitant]
     Dosage: UNK

REACTIONS (1)
  - CEREBROVASCULAR ACCIDENT [None]
